FAERS Safety Report 23775729 (Version 1)
Quarter: 2024Q2

REPORT INFORMATION
  Report Type: Spontaneous
  Country: IL (occurrence: IL)
  Receive Date: 20240423
  Receipt Date: 20240423
  Transmission Date: 20240715
  Serious: Yes (Hospitalization)
  Sender: FDA-Public Use
  Company Number: IL-ABBVIE-5730121

PATIENT
  Age: 60 Year
  Sex: Female

DRUGS (3)
  1. BOTULINUM TOXIN NOS [Suspect]
     Active Substance: BOTULINUM TOXIN NOS
     Indication: Bruxism
     Dosage: TIME INTERVAL: AS NECESSARY: 25 IU PER GLAND
     Route: 030
  2. BOTULINUM TOXIN NOS [Suspect]
     Active Substance: BOTULINUM TOXIN NOS
     Indication: Bruxism
     Dosage: TIME INTERVAL: AS NECESSARY
     Route: 030
  3. BOTULINUM TOXIN NOS [Suspect]
     Active Substance: BOTULINUM TOXIN NOS
     Indication: Bruxism
     Dosage: TIME INTERVAL: AS NECESSARY: 25 IU PER GLAND
     Route: 030

REACTIONS (1)
  - Parotitis [Recovering/Resolving]
